FAERS Safety Report 15258441 (Version 1)
Quarter: 2018Q3

REPORT INFORMATION
  Report Type: Spontaneous
  Country: IT (occurrence: IT)
  Receive Date: 20180809
  Receipt Date: 20180809
  Transmission Date: 20181010
  Serious: Yes (Life-Threatening)
  Sender: FDA-Public Use
  Company Number: IT-TEVA-2018-IT-937249

PATIENT
  Age: 65 Year
  Sex: Male

DRUGS (6)
  1. OLEA EUROPAEA LEAF [Concomitant]
     Route: 065
  2. HYDROCHLOROTHIAZIDE W/RAMIPRIL [Suspect]
     Active Substance: HYDROCHLOROTHIAZIDE\RAMIPRIL
     Indication: HYPERTENSION
     Route: 065
     Dates: start: 2010
  3. DOXAZOSIN [Suspect]
     Active Substance: DOXAZOSIN\DOXAZOSIN MESYLATE
     Indication: HYPERTENSION
     Route: 065
     Dates: start: 2010
  4. RAMIPRIL. [Suspect]
     Active Substance: RAMIPRIL
     Indication: HYPERTENSION
     Route: 065
     Dates: start: 2010
  5. CARVEDILOL. [Suspect]
     Active Substance: CARVEDILOL
     Indication: HYPERTENSION
     Route: 065
     Dates: start: 2010
  6. HAWTHORN [Concomitant]
     Active Substance: CRATAEGUS LAEVIGATA FRUIT
     Route: 065

REACTIONS (13)
  - Asthma [Recovering/Resolving]
  - Salivary hypersecretion [Recovering/Resolving]
  - Angioedema [Recovering/Resolving]
  - Gastric disorder [Recovering/Resolving]
  - Dyspnoea [Recovering/Resolving]
  - Orthostatic hypotension [Recovering/Resolving]
  - Bronchial disorder [Recovering/Resolving]
  - Somnolence [Recovering/Resolving]
  - Oedema peripheral [Recovering/Resolving]
  - Oesophageal disorder [Recovering/Resolving]
  - Cough [Recovering/Resolving]
  - Mouth breathing [Recovering/Resolving]
  - Abdominal distension [Recovering/Resolving]

NARRATIVE: CASE EVENT DATE: 2017
